FAERS Safety Report 7237202-5 (Version None)
Quarter: 2011Q1

REPORT INFORMATION
  Report Type: 
  Country: None (occurrence: None)
  Receive Date: 20110111
  Receipt Date: 20110103
  Transmission Date: 20110831
  Serious: Yes (Other)
  Sender: FDA-Public Use
  Company Number: TRP_07495_2011

PATIENT
  Age: 35 Year

DRUGS (5)
  1. SODIUM BICARBONATE [Concomitant]
  2. MTX /00113801/ (MTX-HD) (NOT SPECIFIED) [Suspect]
     Indication: ACUTE LYMPHOCYTIC LEUKAEMIA
     Dosage: (5160 MG1X/24 HOURS)
  3. AMPHOTERICIN B [Suspect]
     Indication: FUNGAL INFECTION
     Dosage: (0.5 MG/KG, DAILY) ; (1 MG/KG, DAILY)
     Dates: start: 20090216, end: 20090217
  4. AMPHOTERICIN B [Suspect]
     Indication: FUNGAL INFECTION
     Dosage: (0.5 MG/KG, DAILY) ; (1 MG/KG, DAILY)
     Dates: start: 20090215, end: 20090215
  5. FOLINIC ACID [Concomitant]

REACTIONS (7)
  - RENAL IMPAIRMENT [None]
  - HYPONATRAEMIA [None]
  - HYPERURICAEMIA [None]
  - CHEMOTHERAPEUTIC DRUG LEVEL ABOVE THERAPEUTIC [None]
  - HYPOKALAEMIA [None]
  - TOXICITY TO VARIOUS AGENTS [None]
  - DRUG INTERACTION [None]
